FAERS Safety Report 5745841-3 (Version None)
Quarter: 2008Q2

REPORT INFORMATION
  Report Type: 
  Country: None (occurrence: None)
  Receive Date: 20080520
  Receipt Date: 20080508
  Transmission Date: 20081010
  Serious: Yes (Other)
  Sender: FDA-Public Use
  Company Number: GXKR2008GB04276

PATIENT
  Age: 70 Year
  Sex: Female

DRUGS (7)
  1. ATENOLOL [Suspect]
     Indication: HYPERTENSION
     Dosage: 50 MG
     Dates: start: 20060530, end: 20060530
  2. LACTIC ACID (LACTIC ACID) UNKNOWN [Suspect]
     Dosage: 2 DF
     Dates: start: 20060630, end: 20060630
  3. LACTIC ACID (LACTIC ACID) UNKNOWN [Suspect]
     Dosage: 2 DF
     Dates: start: 20061011, end: 20061011
  4. LACTIC ACID (LACTIC ACID) UNKNOWN [Suspect]
     Dosage: 2 DF
     Dates: start: 20071106, end: 20071106
  5. BENDROFLUAZIDE (BENDROFLUMETHIAZIDE) [Concomitant]
  6. AMLODIPINE BESYLATE [Concomitant]
  7. PERINDOPRIL ERBUMINE [Concomitant]

REACTIONS (9)
  - ABSCESS [None]
  - ERYTHEMA [None]
  - GRANULOMA SKIN [None]
  - INFLAMMATION [None]
  - INJECTION SITE NODULE [None]
  - KELOID SCAR [None]
  - PURULENCE [None]
  - SCAR [None]
  - SKIN LESION [None]
